FAERS Safety Report 9828767 (Version 1)
Quarter: 2014Q1

REPORT INFORMATION
  Report Type: Spontaneous
  Country: JP (occurrence: JP)
  Receive Date: 20140117
  Receipt Date: 20140117
  Transmission Date: 20141002
  Serious: Yes (Hospitalization, Other)
  Sender: FDA-Public Use
  Company Number: JP-TAKEDA-2014TJP000625

PATIENT
  Age: 90 Year
  Sex: Male

DRUGS (13)
  1. NESINA TABLETS 25MG [Suspect]
     Indication: DIABETES MELLITUS
     Dosage: 25 MG, QD
     Route: 048
     Dates: start: 2011
  2. BLOPRESS [Concomitant]
     Route: 048
  3. MAGMITT [Concomitant]
     Route: 048
  4. AMBROXOL HYDROCHLORIDE [Concomitant]
     Route: 048
  5. BAYASPIRIN [Concomitant]
     Route: 048
  6. FAMOTIDINE [Concomitant]
     Route: 048
  7. CARBOCISTEINE [Concomitant]
     Route: 048
  8. OPALMON [Concomitant]
     Route: 048
  9. BERIZYM                            /00517401/ [Concomitant]
     Route: 048
  10. GASCON [Concomitant]
     Route: 048
  11. SPIRIVA [Concomitant]
     Route: 048
  12. KETOPROFEN [Concomitant]
     Route: 062
  13. MYSLEE [Concomitant]
     Route: 048

REACTIONS (1)
  - Mechanical ileus [Recovered/Resolved]
